FAERS Safety Report 7778546-8 (Version None)
Quarter: 2011Q3

REPORT INFORMATION
  Report Type: 
  Country: None (occurrence: None)
  Receive Date: 20110926
  Receipt Date: 20110920
  Transmission Date: 20111222
  Serious: Yes (Death, Hospitalization, Other)
  Sender: FDA-Public Use
  Company Number: US-BAYER-2011-089007

PATIENT
  Age: 93 Year
  Sex: Female

DRUGS (6)
  1. CIPROFLOXACIN [Suspect]
     Indication: KIDNEY INFECTION
     Dosage: UNK
  2. ATIVAN [Concomitant]
  3. MORPHINE [Concomitant]
  4. LASIX [Concomitant]
  5. PACERONE [Interacting]
  6. SODIUM CHLORIDE INJ [Concomitant]
     Dosage: 8 OR 9 BAGS

REACTIONS (1)
  - CARDIAC FAILURE CONGESTIVE [None]
